FAERS Safety Report 4442276-0 (Version None)
Quarter: 2004Q3

REPORT INFORMATION
  Report Type: 
  Country: None (occurrence: None)
  Receive Date: 20040903
  Receipt Date: 20040726
  Transmission Date: 20050211
  Serious: Yes (Other)
  Sender: FDA-Public Use
  Company Number: 2004UW14745

PATIENT
  Age: 70 Year
  Sex: Female
  Weight: 60.782 kg

DRUGS (5)
  1. CRESTOR [Suspect]
     Indication: HYPERLIPIDAEMIA
     Dosage: 10 MG QD PO
     Route: 048
     Dates: start: 20040621, end: 20040715
  2. ELAVIL [Concomitant]
  3. ESTRACE [Concomitant]
  4. PROTONIX [Concomitant]
  5. ZOCOR [Concomitant]

REACTIONS (6)
  - ABDOMINAL DISCOMFORT [None]
  - ASTHENIA [None]
  - DEPRESSED MOOD [None]
  - FATIGUE [None]
  - HYPERTENSION [None]
  - TREMOR [None]
